FAERS Safety Report 4989574-X (Version None)
Quarter: 2006Q2

REPORT INFORMATION
  Report Type: 
  Country: None (occurrence: None)
  Receive Date: 20060426
  Receipt Date: 20060412
  Transmission Date: 20061013
  Serious: Yes (Other)
  Sender: FDA-Public Use
  Company Number: 185584

PATIENT
  Age: 56 Year
  Sex: Female

DRUGS (15)
  1. AVONEX [Suspect]
     Indication: MULTIPLE SCLEROSIS
     Dosage: 30 UG;QW;IM
     Route: 030
     Dates: start: 19981201
  2. IBUPROFEN [Concomitant]
  3. NEURONTIN [Concomitant]
  4. ZOLOFT [Concomitant]
  5. KLONOPIN [Concomitant]
  6. LIPITOR [Concomitant]
  7. BACLOFEN [Concomitant]
  8. TIZANIDINE HCL [Concomitant]
  9. LEVOTHROID [Concomitant]
  10. CLARITIN [Concomitant]
  11. ZYRTEC [Concomitant]
  12. VIOXX [Concomitant]
  13. PREMPRO [Concomitant]
  14. DITROPAN [Concomitant]
  15. ESTROGENS SOL/INJ [Concomitant]

REACTIONS (2)
  - BREAST CANCER [None]
  - VAGINAL CANCER [None]
